FAERS Safety Report 6558021-9 (Version None)
Quarter: 2010Q1

REPORT INFORMATION
  Report Type: 
  Country: None (occurrence: None)
  Receive Date: 20100129
  Receipt Date: 20100119
  Transmission Date: 20100710
  Serious: Yes (Death, Disabling, Other)
  Sender: FDA-Public Use
  Company Number: US-ELI_LILLY_AND_COMPANY-US200702003310

PATIENT
  Sex: Male
  Weight: 29.478 kg

DRUGS (18)
  1. ZYPREXA [Suspect]
     Indication: AGITATION
     Dosage: 10 MG, UNK
     Route: 048
     Dates: start: 20041116
  2. ZYPREXA [Suspect]
     Dosage: 15 MG, UNK
     Route: 048
     Dates: start: 20041118
  3. ZYPREXA [Suspect]
     Dosage: 10 MG, UNK
     Route: 048
     Dates: start: 20041119
  4. ZYPREXA [Suspect]
     Dosage: 12.5 MG, UNK
     Route: 048
     Dates: start: 20041121
  5. ZYPREXA [Suspect]
     Dosage: 25 MG, UNK
     Route: 048
     Dates: start: 20041122
  6. ZYPREXA [Suspect]
     Dosage: 15 MG, UNK
     Route: 048
     Dates: start: 20041123
  7. ZYPREXA [Suspect]
     Dosage: 7.5 MG, UNK
     Route: 048
     Dates: start: 20041124, end: 20050201
  8. ZYPREXA [Suspect]
  9. RISPERDAL [Concomitant]
     Dosage: UNK, UNK
     Route: 048
     Dates: start: 20041115
  10. LEXAPRO [Concomitant]
     Indication: DEPRESSED MOOD
     Dosage: 10 MG, UNK
     Route: 048
     Dates: start: 20041116
  11. ATIVAN [Concomitant]
     Dosage: 1 MG, AS NEEDED
     Dates: start: 20041115, end: 20041117
  12. ATIVAN [Concomitant]
     Dosage: 35 MG, AS NEEDED
     Dates: start: 20041117
  13. ATIVAN [Concomitant]
     Dosage: UNK, UNK
     Route: 048
     Dates: start: 20071101
  14. HALDOL [Concomitant]
     Dosage: 5 MG, UNK
     Route: 048
     Dates: start: 20041115
  15. HALDOL [Concomitant]
     Dosage: 10 MG, UNK
  16. ARICEPT [Concomitant]
     Indication: DEMENTIA
  17. ROCEPHIN [Concomitant]
     Indication: CYSTITIS
     Dosage: 10 MG, UNK
     Dates: start: 20041115
  18. DURICEF [Concomitant]
     Dosage: 500 MG, UNK

REACTIONS (26)
  - ABASIA [None]
  - AGITATION [None]
  - ASTHENIA [None]
  - BODY TEMPERATURE INCREASED [None]
  - CEREBROVASCULAR ACCIDENT [None]
  - CHOKING [None]
  - DEMENTIA [None]
  - DROOLING [None]
  - DYSKINESIA [None]
  - DYSPEPSIA [None]
  - DYSPHAGIA [None]
  - EXTRAOCULAR MUSCLE PARESIS [None]
  - FACIAL PALSY [None]
  - HEMIPARESIS [None]
  - HYPOTENSION [None]
  - INCONTINENCE [None]
  - LETHARGY [None]
  - MENTAL IMPAIRMENT [None]
  - MUSCLE RIGIDITY [None]
  - MUSCLE SPASTICITY [None]
  - OFF LABEL USE [None]
  - OVERDOSE [None]
  - PNEUMONIA [None]
  - PNEUMONIA ASPIRATION [None]
  - SPEECH DISORDER [None]
  - TREMOR [None]
